FAERS Safety Report 6497789-7 (Version None)
Quarter: 2009Q4

REPORT INFORMATION
  Report Type: 
  Country: None (occurrence: None)
  Receive Date: 20091215
  Receipt Date: 20091211
  Transmission Date: 20100525
  Serious: Yes (Death)
  Sender: FDA-Public Use
  Company Number: US-JNJFOC-20091203998

PATIENT
  Age: 51 Year
  Sex: Female
  Weight: 89.81 kg

DRUGS (8)
  1. FENTANYL [Suspect]
     Indication: DRUG USE FOR UNKNOWN INDICATION
     Dosage: 8 UG/L
     Route: 065
  2. ACETAMINOPHEN [Concomitant]
     Route: 065
  3. LIDOCAINE [Concomitant]
     Route: 065
  4. MEPIVACAINE HCL [Concomitant]
     Route: 065
  5. BUPIVACAINE [Concomitant]
     Route: 065
  6. OXYCODONE [Concomitant]
     Route: 065
  7. COCAINE [Concomitant]
     Route: 065
  8. BENZOYLECGONINE [Concomitant]
     Dosage: 0.89 MG/L
     Route: 065

REACTIONS (2)
  - ANALGESIC DRUG LEVEL INCREASED [None]
  - ARTERIOSCLEROSIS [None]
